FAERS Safety Report 9423619 (Version 2)
Quarter: 2013Q3

REPORT INFORMATION
  Report Type: Report from Study
  Country: IT (occurrence: IT)
  Receive Date: 20130726
  Receipt Date: 20130808
  Transmission Date: 20140515
  Serious: Yes (Life-Threatening)
  Sender: FDA-Public Use
  Company Number: PHHO2013IT009568

PATIENT
  Sex: 0

DRUGS (8)
  1. INC424 [Suspect]
     Indication: MYELOFIBROSIS
     Dosage: 20 MG, BID
     Route: 048
     Dates: start: 20130320, end: 20130612
  2. INC424 [Suspect]
     Dosage: 20 MG, BID
     Route: 048
     Dates: start: 20130703
  3. LASIX [Suspect]
     Indication: OEDEMA
     Dosage: UNK
     Dates: start: 2012
  4. ALLOPURINOL [Concomitant]
     Indication: PROPHYLAXIS
     Dosage: UNK
     Dates: start: 201301
  5. ASA [Concomitant]
     Indication: PROPHYLAXIS
     Dosage: UNK
     Dates: start: 2009
  6. METOPROLOL [Concomitant]
     Indication: PROPHYLAXIS
     Dosage: UNK
     Dates: start: 2002
  7. CARDURA [Concomitant]
     Indication: PROPHYLAXIS
  8. INSULIN [Concomitant]
     Indication: DIABETES MELLITUS

REACTIONS (1)
  - Renal failure acute [Recovered/Resolved]
